FAERS Safety Report 10084302 (Version 2)
Quarter: 2014Q2

REPORT INFORMATION
  Report Type: Spontaneous
  Country: US (occurrence: US)
  Receive Date: 20140417
  Receipt Date: 20140428
  Transmission Date: 20141212
  Serious: Yes (Hospitalization)
  Sender: FDA-Public Use
  Company Number: US-009507513-1404USA007200

PATIENT
  Sex: Female

DRUGS (2)
  1. SIMVASTATIN TABLETS, USP [Suspect]
     Dosage: UNK
     Route: 048
  2. ESTRING [Concomitant]
     Dosage: EVERY 90 DAYS

REACTIONS (3)
  - Heart rate irregular [Unknown]
  - Influenza [Unknown]
  - Malaise [Unknown]
